FAERS Safety Report 7722439-9 (Version None)
Quarter: 2011Q3

REPORT INFORMATION
  Report Type: 
  Country: None (occurrence: None)
  Receive Date: 20110825
  Receipt Date: 20110818
  Transmission Date: 20111222
  Serious: Yes (Hospitalization)
  Sender: FDA-Public Use
  Company Number: 15160708

PATIENT
  Age: 49 Year
  Sex: Male

DRUGS (7)
  1. WARFARIN SODIUM [Suspect]
     Indication: EMBOLISM
     Dosage: 1 DOSAGE FORM 1 DAY, ORAL
     Route: 048
     Dates: start: 20100420, end: 20100522
  2. PLACEBO [Suspect]
     Indication: EMBOLISM
     Dates: start: 20100420, end: 20100101
  3. CHONDROITIN SULFATE (CHONDROITIN SULFATE) [Concomitant]
  4. ALENDRONATE SODIUM [Concomitant]
  5. APIXABAN [Suspect]
     Indication: EMBOLISM
     Dosage: 10 MILLIGRAM 1 DAY, ORAL
     Route: 048
     Dates: start: 20100420, end: 20100522
  6. OMEPRAZOLE [Concomitant]
  7. ENOXAPARIN SODIUM [Suspect]
     Indication: EMBOLISM
     Dosage: 170 MILLIGRAM 1 DAY, SC
     Route: 058
     Dates: start: 20100420, end: 20100425

REACTIONS (1)
  - FLATULENCE [None]
